FAERS Safety Report 14372968 (Version 1)
Quarter: 2018Q1

REPORT INFORMATION
  Report Type: Spontaneous
  Country: JP (occurrence: JP)
  Receive Date: 20180110
  Receipt Date: 20180110
  Transmission Date: 20180509
  Serious: Yes (Life-Threatening, Hospitalization, Other)
  Sender: FDA-Public Use
  Company Number: JP-MYLANLABS-2018M1002772

PATIENT
  Age: 70 Year
  Sex: Male

DRUGS (2)
  1. FONDAPARINUX MYLAN [Suspect]
     Active Substance: FONDAPARINUX
     Indication: DEEP VEIN THROMBOSIS
     Dosage: 5 MG, QD
     Route: 058
     Dates: start: 20171013, end: 20171017
  2. LIXIANA [Concomitant]
     Active Substance: EDOXABAN TOSYLATE
     Indication: PRODUCT USED FOR UNKNOWN INDICATION
     Dosage: UNK

REACTIONS (4)
  - Nausea [Unknown]
  - Subdural haematoma [Unknown]
  - Vomiting [Unknown]
  - Extradural haematoma [Unknown]

NARRATIVE: CASE EVENT DATE: 20171017
